FAERS Safety Report 6070127-X (Version None)
Quarter: 2009Q1

REPORT INFORMATION
  Report Type: 
  Country: None (occurrence: None)
  Receive Date: 20090204
  Receipt Date: 20081008
  Transmission Date: 20090719
  Serious: Yes (Hospitalization, Other)
  Sender: FDA-Public Use
  Company Number: 530#6#2008-00028

PATIENT
  Sex: Male
  Weight: 92 kg

DRUGS (13)
  1. NEUPRO [Suspect]
     Indication: PARKINSON'S DISEASE
     Dosage: SEE IMAGE
     Route: 062
     Dates: start: 20070201, end: 20070207
  2. NEUPRO [Suspect]
     Indication: PARKINSON'S DISEASE
     Dosage: SEE IMAGE
     Route: 062
     Dates: start: 20070208, end: 20070214
  3. NEUPRO [Suspect]
     Indication: PARKINSON'S DISEASE
     Dosage: SEE IMAGE
     Route: 062
     Dates: start: 20070215, end: 20080101
  4. ACE INHIBITOR NOS [Concomitant]
  5. ACETYLSALICYLIC ACID [Concomitant]
  6. OMNIC [Concomitant]
  7. GABAPENTIN [Concomitant]
  8. PROPRANOLOL [Concomitant]
  9. CABERGOLINE [Concomitant]
  10. LEVODOPA [Concomitant]
  11. CARBIDOPA AND LEVODOPA [Concomitant]
  12. PRAMIPEXOLE DIHYDROCHLORIDE [Concomitant]
  13. ROPINIROLE [Concomitant]

REACTIONS (2)
  - CARDIOVASCULAR DISORDER [None]
  - LOSS OF CONSCIOUSNESS [None]
